FAERS Safety Report 12656321 (Version 1)
Quarter: 2016Q3

REPORT INFORMATION
  Report Type: Spontaneous
  Country: US (occurrence: US)
  Receive Date: 20160816
  Receipt Date: 20160816
  Transmission Date: 20161109
  Serious: No
  Sender: FDA-Public Use
  Company Number: US-PERRIGO-15US007527

PATIENT
  Age: 68 Year
  Sex: Male
  Weight: 76.19 kg

DRUGS (5)
  1. LORATADINE. [Suspect]
     Active Substance: LORATADINE
     Indication: LACRIMATION INCREASED
  2. LORATADINE. [Suspect]
     Active Substance: LORATADINE
     Indication: SEASONAL ALLERGY
  3. LORATADINE. [Suspect]
     Active Substance: LORATADINE
     Indication: SNEEZING
     Dosage: 10 MG, QD
     Route: 048
     Dates: start: 201503, end: 20150716
  4. LORATADINE. [Suspect]
     Active Substance: LORATADINE
     Indication: EYE PRURITUS
     Dosage: 10 MG, SINGLE
     Route: 048
     Dates: start: 20150717, end: 20150717
  5. PRESCRIBED MEDICATION FOR HIGH BLOOD PRESSURE [Concomitant]
     Indication: HYPERTENSION
     Dosage: UNK
     Route: 048

REACTIONS (3)
  - Hypersomnia [Recovered/Resolved]
  - Feeling abnormal [Recovered/Resolved]
  - Somnolence [Recovered/Resolved]

NARRATIVE: CASE EVENT DATE: 20150717
